FAERS Safety Report 4829125-3 (Version None)
Quarter: 2005Q4

REPORT INFORMATION
  Report Type: 
  Country: None (occurrence: None)
  Receive Date: 20051031
  Receipt Date: 20041018
  Transmission Date: 20060501
  Serious: Yes (Other)
  Sender: FDA-Public Use
  Company Number: 200417962US

PATIENT

DRUGS (2)
  1. ARAVA [Suspect]
     Dosage: 100 MG QD
  2. ARAVA [Suspect]
     Dosage: 20 MG QD

REACTIONS (3)
  - HAEMOGLOBIN DECREASED [None]
  - PANCYTOPENIA [None]
  - WHITE BLOOD CELL COUNT DECREASED [None]
